FAERS Safety Report 4927463-7 (Version None)
Quarter: 2006Q1

REPORT INFORMATION
  Report Type: 
  Country: None (occurrence: None)
  Receive Date: 20060228
  Receipt Date: 20050302
  Transmission Date: 20060701
  Serious: Yes (Hospitalization)
  Sender: FDA-Public Use
  Company Number: US-MERCK-0503USA00377

PATIENT
  Age: 51 Year
  Sex: Male
  Weight: 100 kg

DRUGS (3)
  1. VIOXX [Suspect]
     Indication: BACK PAIN
     Route: 048
     Dates: start: 20010501, end: 20020101
  2. VIOXX [Suspect]
     Indication: NEURALGIA
     Route: 048
     Dates: start: 20010501, end: 20020101
  3. VICODIN [Concomitant]
     Route: 065

REACTIONS (15)
  - ACUTE MYOCARDIAL INFARCTION [None]
  - BLOOD TRIGLYCERIDES INCREASED [None]
  - COLON CANCER [None]
  - CORONARY ARTERY OCCLUSION [None]
  - DIABETES MELLITUS [None]
  - ELECTROCARDIOGRAM ST SEGMENT ELEVATION [None]
  - HYPERTENSION [None]
  - INTRACARDIAC THROMBUS [None]
  - LEUKOCYTOSIS [None]
  - METABOLIC SYNDROME [None]
  - MYOCARDIAL ISCHAEMIA [None]
  - PULMONARY CONGESTION [None]
  - RESPIRATORY TRACT INFECTION [None]
  - STENT OCCLUSION [None]
  - THROMBOSIS IN DEVICE [None]
